FAERS Safety Report 21500436 (Version 2)
Quarter: 2022Q4

REPORT INFORMATION
  Report Type: Report from Study
  Country: US (occurrence: US)
  Receive Date: 20221025
  Receipt Date: 20221230
  Transmission Date: 20230113
  Serious: Yes (Other)
  Sender: FDA-Public Use
  Company Number: US-ABBVIE-22K-163-4466104-00

PATIENT
  Sex: Female

DRUGS (1)
  1. VENCLEXTA [Suspect]
     Active Substance: VENETOCLAX
     Indication: Chronic lymphocytic leukaemia
     Route: 048
     Dates: start: 20200410

REACTIONS (7)
  - Skin cancer [Unknown]
  - Skin laceration [Unknown]
  - Fall [Unknown]
  - Upper limb fracture [Unknown]
  - COVID-19 [Unknown]
  - Fractured sacrum [Unknown]
  - Wound infection [Unknown]
